FAERS Safety Report 9041614 (Version 1)
Quarter: 2013Q1

REPORT INFORMATION
  Report Type: Report from Study
  Country: US (occurrence: US)
  Receive Date: 20130129
  Receipt Date: 20130129
  Transmission Date: 20140127
  Serious: No
  Sender: FDA-Public Use
  Company Number: US-ABBOTT-12P-163-0901535-00

PATIENT
  Age: 57 Year
  Sex: Male

DRUGS (5)
  1. HUMIRA 40 MG/0.8 ML PEN [Suspect]
     Indication: PSORIASIS
     Dates: start: 20120113
  2. HALOBETASOL [Concomitant]
     Indication: PSORIASIS
  3. VECTICAL [Concomitant]
     Indication: PSORIASIS
  4. EXFORGE [Concomitant]
     Indication: HYPERTENSION
     Dosage: 5/160/25 MILLIGRAMS DAILY
  5. LIPITOR [Concomitant]
     Indication: BLOOD CHOLESTEROL INCREASED
     Dosage: 100 MG DAILY

REACTIONS (3)
  - Psoriasis [Not Recovered/Not Resolved]
  - Pruritus [Not Recovered/Not Resolved]
  - Skin irritation [Not Recovered/Not Resolved]
